FAERS Safety Report 4284073-5 (Version None)
Quarter: 2004Q1

REPORT INFORMATION
  Report Type: 
  Country: None (occurrence: None)
  Receive Date: 20040202
  Receipt Date: 20040202
  Transmission Date: 20041129
  Serious: No
  Sender: FDA-Public Use
  Company Number: None

PATIENT
  Age: 61 Year
  Sex: Female
  Weight: 105.6881 kg

DRUGS (15)
  1. ULTRACET [Suspect]
     Indication: ARTHRALGIA
     Dosage: 1-2 TABS Q 4-6 H PR ORAL
     Route: 048
     Dates: start: 20040106, end: 20040108
  2. ULTRACET [Suspect]
     Indication: BURSITIS
     Dosage: 1-2 TABS Q 4-6 H PR ORAL
     Route: 048
     Dates: start: 20040106, end: 20040108
  3. AMITRIPTYLINE HCL [Concomitant]
  4. ASPIRIN [Concomitant]
  5. GLUCOTORL XL [Concomitant]
  6. HYDROCHLOROTHIAZIDE [Concomitant]
  7. SYNTHROID [Concomitant]
  8. PRAVASTATIN [Concomitant]
  9. CALCIUM CARBONATE [Concomitant]
  10. NORVASC [Concomitant]
  11. LEVSIN [Concomitant]
  12. CLARITIN [Concomitant]
  13. COZAAR [Concomitant]
  14. AVANDIA [Concomitant]
  15. NEXIUM [Concomitant]

REACTIONS (5)
  - BLOOD GLUCOSE INCREASED [None]
  - FLUSHING [None]
  - HYPERSENSITIVITY [None]
  - POLLAKIURIA [None]
  - RASH [None]
